FAERS Safety Report 5959747-8 (Version None)
Quarter: 2008Q4

REPORT INFORMATION
  Report Type: 
  Country: None (occurrence: None)
  Receive Date: 20081120
  Receipt Date: 20081114
  Transmission Date: 20090506
  Serious: Yes (Hospitalization)
  Sender: FDA-Public Use
  Company Number: US-BRISTOL-MYERS SQUIBB COMPANY-14407894

PATIENT
  Age: 65 Year
  Sex: Male
  Weight: 68 kg

DRUGS (24)
  1. CETUXIMAB [Suspect]
     Indication: NON-SMALL CELL LUNG CANCER
     Dosage: INITIAL DOSE WAS GIVEN ON 29-OCT-2007.
     Route: 042
     Dates: start: 20080107, end: 20080107
  2. BEVACIZUMAB [Suspect]
     Indication: NON-SMALL CELL LUNG CANCER
     Route: 042
     Dates: start: 20071105, end: 20071105
  3. PACLITAXEL [Suspect]
     Indication: NON-SMALL CELL LUNG CANCER
     Dosage: FIRST INFUSION WAS GIVEN ON 29-OCT-2007.
     Route: 042
     Dates: start: 20071231, end: 20071231
  4. CARBOPLATIN [Suspect]
     Indication: NON-SMALL CELL LUNG CANCER
     Dosage: FIRST INFUSION WAS GIVEN ON 29-OCT-2007.
     Route: 042
     Dates: start: 20071231, end: 20071231
  5. DECADRON [Suspect]
     Indication: PREMEDICATION
  6. COREG [Concomitant]
     Indication: HYPERTENSION
     Dosage: COREG SC.
     Route: 065
     Dates: start: 20070921
  7. ALTACE [Concomitant]
     Indication: HYPERTENSION
     Route: 065
     Dates: start: 19990101
  8. LIPITOR [Concomitant]
     Indication: HYPERCHOLESTEROLAEMIA
     Route: 065
     Dates: start: 19920101
  9. ASPIRIN [Concomitant]
     Indication: PROPHYLAXIS
     Route: 065
     Dates: start: 19780101
  10. AVODART [Concomitant]
     Indication: BENIGN PROSTATIC HYPERPLASIA
     Route: 065
     Dates: start: 20070921
  11. FLOMAX [Concomitant]
     Indication: BENIGN PROSTATIC HYPERPLASIA
     Route: 065
     Dates: start: 20070921
  12. AMBIEN CR [Concomitant]
     Indication: INSOMNIA
     Route: 065
     Dates: start: 20040101
  13. HYDROCODONE BITARTRATE [Concomitant]
     Indication: PAIN
     Dosage: HYDROCODONE/APAP.
     Route: 065
     Dates: start: 20070801
  14. ATIVAN [Concomitant]
     Indication: VOMITING
     Route: 065
     Dates: start: 20071023
  15. XANAX [Concomitant]
     Indication: ANXIETY
     Route: 065
     Dates: start: 20071018
  16. SENOKOT [Concomitant]
     Indication: CONSTIPATION
     Route: 065
     Dates: start: 20070801
  17. MIRALAX [Concomitant]
     Indication: CONSTIPATION
     Route: 065
     Dates: start: 20070901
  18. LASIX [Concomitant]
     Route: 065
     Dates: start: 20071126
  19. POTASSIUM CHLORIDE [Concomitant]
     Indication: PROPHYLAXIS
     Route: 065
     Dates: start: 20071126
  20. PLAVIX [Concomitant]
     Indication: TRANSIENT ISCHAEMIC ATTACK
     Route: 065
     Dates: start: 20071130
  21. COUMADIN [Concomitant]
     Indication: ATRIAL FIBRILLATION
     Route: 065
     Dates: start: 20071203
  22. MEDROL [Concomitant]
     Indication: RASH GENERALISED
     Dosage: MEDROL DOSEPAK.
     Route: 065
     Dates: start: 20080102, end: 20080108
  23. FISH OIL [Concomitant]
     Route: 065
  24. FENTANYL [Concomitant]
     Route: 062

REACTIONS (1)
  - NEUTROPENIC SEPSIS [None]
